FAERS Safety Report 9859673 (Version 2)
Quarter: 2014Q2

REPORT INFORMATION
  Report Type: Spontaneous
  Country: US (occurrence: US)
  Receive Date: 20140131
  Receipt Date: 20140523
  Transmission Date: 20141212
  Serious: Yes (Hospitalization)
  Sender: FDA-Public Use
  Company Number: US-VIIV HEALTHCARE LIMITED-A1058751A

PATIENT
  Age: 56 Year
  Sex: Male

DRUGS (16)
  1. TIVICAY [Suspect]
     Indication: HIV INFECTION
     Dosage: 50MG UNKNOWN
     Dates: start: 20110601
  2. PREZISTA [Suspect]
     Indication: PRODUCT USED FOR UNKNOWN INDICATION
  3. NORVIR [Suspect]
     Indication: PRODUCT USED FOR UNKNOWN INDICATION
     Route: 065
  4. INTELENCE [Suspect]
     Indication: PRODUCT USED FOR UNKNOWN INDICATION
  5. TRUVADA [Concomitant]
  6. FLOMAX [Concomitant]
  7. DEPO-TESTOSTERONE [Concomitant]
  8. CRESTOR [Concomitant]
  9. NIACIN [Concomitant]
  10. CIALIS [Concomitant]
  11. FOSAMAX [Concomitant]
  12. TRAMADOL [Concomitant]
  13. VALTREX [Concomitant]
  14. HYDROCHLOROTHIAZIDE [Concomitant]
  15. HYDROXYZINE [Concomitant]
  16. POTASSIUM CHLORIDE [Concomitant]

REACTIONS (7)
  - Atrial fibrillation [Unknown]
  - Cardioversion [Unknown]
  - Cardiac ablation [Unknown]
  - Staphylococcal infection [Unknown]
  - Coronary artery bypass [Unknown]
  - Mycotic allergy [Unknown]
  - Cardiac failure congestive [Not Recovered/Not Resolved]
